FAERS Safety Report 22249111 (Version 1)
Quarter: 2023Q2

REPORT INFORMATION
  Report Type: Spontaneous
  Country: ES (occurrence: ES)
  Receive Date: 20230425
  Receipt Date: 20230425
  Transmission Date: 20230722
  Serious: Yes (Life-Threatening)
  Sender: FDA-Public Use
  Company Number: None

PATIENT
  Age: 74 Year
  Sex: Female
  Weight: 58 kg

DRUGS (1)
  1. PARICALCITOL [Suspect]
     Active Substance: PARICALCITOL
     Indication: Chronic kidney disease-mineral and bone disorder
     Dosage: STRENGTH: 2 MCG/ML, EFG, 5 AMPOULES OF 1 ML, 2 MCG
     Dates: start: 20180421, end: 20180626

REACTIONS (2)
  - Respiratory arrest [Recovered/Resolved with Sequelae]
  - Hypotension [Recovered/Resolved with Sequelae]
